FAERS Safety Report 19954021 (Version 2)
Quarter: 2022Q1

REPORT INFORMATION
  Report Type: Spontaneous
  Country: FR (occurrence: FR)
  Receive Date: 20211014
  Receipt Date: 20220128
  Transmission Date: 20220424
  Serious: Yes (Hospitalization)
  Sender: FDA-Public Use
  Company Number: None

PATIENT
  Age: 74 Year
  Sex: Male

DRUGS (2)
  1. ALLOPURINOL [Suspect]
     Active Substance: ALLOPURINOL
     Indication: Gout
     Dosage: 100 MG
     Route: 048
     Dates: start: 20210728, end: 20210813
  2. COLCHICINE [Suspect]
     Active Substance: COLCHICINE
     Indication: Gout
     Dosage: 0.5 MG
     Route: 048
     Dates: start: 20210728, end: 20210813

REACTIONS (1)
  - Epidermal necrosis [Recovering/Resolving]

NARRATIVE: CASE EVENT DATE: 20210813
